FAERS Safety Report 9769455 (Version 1)
Quarter: 2013Q3

REPORT INFORMATION
  Report Type: Spontaneous
  Country: PA (occurrence: None)
  Receive Date: 20130909
  Receipt Date: 20130909
  Transmission Date: 20140515
  Serious: Yes (Death)
  Sender: FDA-Public Use
  Company Number: 1813400

PATIENT
  Sex: 0

DRUGS (1)
  1. DEXTROSE 70% INJ, USP, PHARMACY BULK PKG IN FLEX. PLAS. CONT (DEXTROSE) [Suspect]
     Indication: PRODUCT USED FOR UNKNOWN INDICATION

REACTIONS (3)
  - Death neonatal [None]
  - Medication error [None]
  - Nonspecific reaction [None]
